FAERS Safety Report 9169542 (Version 2)
Quarter: 2013Q1

REPORT INFORMATION
  Report Type: Spontaneous
  Country: JP (occurrence: JP)
  Receive Date: 20130318
  Receipt Date: 20130325
  Transmission Date: 20140127
  Serious: Yes (Hospitalization)
  Sender: FDA-Public Use
  Company Number: JP-VERTEX PHARMACEUTICALS INC.-2013-003674

PATIENT
  Age: 72 Year
  Sex: Male

DRUGS (7)
  1. NORVASC [Concomitant]
     Dosage: 5 MG, QD
     Route: 048
  2. FEBURIC [Concomitant]
     Dosage: 20 MG, QD
     Route: 048
  3. TELAVIC [Suspect]
     Indication: CHRONIC HEPATITIS C
     Dosage: 1500 MG, QD
     Route: 048
     Dates: start: 20130208, end: 20130311
  4. RIBAVIRIN [Concomitant]
     Dosage: 400 MG, QD
     Route: 048
     Dates: start: 20130208, end: 20130228
  5. RIBAVIRIN [Concomitant]
     Dosage: 200 MG, QD
     Route: 048
     Dates: start: 20130301, end: 20130307
  6. RIBAVIRIN [Concomitant]
     Dosage: 100 MG, QD
     Route: 048
     Dates: start: 20130308
  7. PEGINTRON [Concomitant]
     Dosage: 1.5 ?G/KG, QW
     Route: 058
     Dates: start: 20130208

REACTIONS (1)
  - Oedema peripheral [Recovered/Resolved]
